FAERS Safety Report 13901809 (Version 3)
Quarter: 2020Q3

REPORT INFORMATION
  Report Type: Report from Study
  Country: SE (occurrence: SE)
  Receive Date: 20170824
  Receipt Date: 20180113
  Transmission Date: 20201105
  Serious: Yes (Death, Life-Threatening, Hospitalization, Disabling, Other)
  Sender: FDA-Public Use
  Company Number: SE-ASTRAZENECA-2017SE00925

PATIENT
  Age: 22156 Day
  Sex: Male

DRUGS (22)
  1. ENALAPRIL [Concomitant]
     Active Substance: ENALAPRIL
     Indication: HYPERTENSION
     Dosage: 10.00MGBID
     Route: 048
  2. PARACETAMOL [Concomitant]
     Active Substance: ACETAMINOPHEN
     Indication: PAIN PROPHYLAXIS
     Dosage: 665.00MGPRN
     Route: 048
  3. OMEPRAZOL [Concomitant]
     Active Substance: OMEPRAZOLE
     Indication: GASTRITIS
     Dosage: 20.00MGQD
     Route: 048
     Dates: start: 20160819
  4. MORFINE [Concomitant]
     Active Substance: MORPHINE
     Indication: BONE PAIN
     Dosage: 5.00MGPRN
     Route: 042
     Dates: start: 20160903
  5. MEDI4736 [Suspect]
     Active Substance: DURVALUMAB
     Indication: NON-SMALL CELL LUNG CANCER
     Route: 042
     Dates: start: 20160916, end: 20160916
  6. OXYCONTIN [Concomitant]
     Active Substance: OXYCODONE HYDROCHLORIDE
     Indication: BONE PAIN
     Dosage: 30.00MGBID
     Route: 048
     Dates: start: 20160901
  7. MEDI4736 [Suspect]
     Active Substance: DURVALUMAB
     Indication: NON-SMALL CELL LUNG CANCER
     Route: 042
     Dates: start: 20160819, end: 20160819
  8. ELIQUIS [Concomitant]
     Active Substance: APIXABAN
     Indication: ATRIAL FIBRILLATION
     Dosage: 5.00MGBID
     Route: 048
  9. TREMELIMUMAB. [Suspect]
     Active Substance: TREMELIMUMAB
     Indication: NON-SMALL CELL LUNG CANCER
     Route: 042
     Dates: start: 20161014, end: 20161014
  10. OXYNORM [Concomitant]
     Active Substance: OXYCODONE HYDROCHLORIDE
     Indication: PAIN PROPHYLAXIS
     Dosage: 5.00MGPRN
     Route: 048
     Dates: start: 20160825
  11. MOVICOL [Concomitant]
     Active Substance: POLYETHYLENE GLYCOL 3350\POTASSIUM CHLORIDE\SODIUM BICARBONATE\SODIUM CHLORIDE
     Indication: CONSTIPATION
     Dosage: 1.00OTHERPRN
     Route: 048
     Dates: start: 20161108
  12. MEDI4736 [Suspect]
     Active Substance: DURVALUMAB
     Indication: NON-SMALL CELL LUNG CANCER
     Route: 042
     Dates: start: 20161014, end: 20161014
  13. TREMELIMUMAB. [Suspect]
     Active Substance: TREMELIMUMAB
     Indication: NON-SMALL CELL LUNG CANCER
     Route: 042
     Dates: start: 20160819, end: 20160819
  14. TREMELIMUMAB. [Suspect]
     Active Substance: TREMELIMUMAB
     Indication: NON-SMALL CELL LUNG CANCER
     Route: 042
     Dates: start: 20160916, end: 20160916
  15. GABAPENTIN. [Concomitant]
     Active Substance: GABAPENTIN
     Indication: BONE PAIN
     Dosage: 300.00MGTID
     Route: 048
     Dates: start: 20160903
  16. LACTULOSE. [Concomitant]
     Active Substance: LACTULOSE
     Indication: CONSTIPATION
     Dosage: 20.00MLPRN
     Dates: start: 20160903
  17. METOPROLOL. [Concomitant]
     Active Substance: METOPROLOL
     Indication: PROPHYLAXIS
     Dosage: 100.00MGBID
     Route: 048
  18. KALCIPOS D [Concomitant]
     Active Substance: CALCIUM CARBONATE\CHOLECALCIFEROL
     Indication: PROPHYLAXIS
     Dosage: 500.00MGBID
     Route: 048
     Dates: start: 20160908
  19. AMLODIPIN [Concomitant]
     Active Substance: AMLODIPINE BESYLATE
     Indication: HYPERTENSION
     Dosage: 10.00MGBID
     Route: 048
  20. NAPROXEN. [Concomitant]
     Active Substance: NAPROXEN
     Indication: BONE PAIN
     Dosage: 500.00MGBID
     Route: 048
     Dates: start: 20160913
  21. SIMIDON [Concomitant]
     Active Substance: SIMVASTATIN
     Indication: PROPHYLAXIS
     Dosage: 40.00MGQD
     Route: 048
  22. XGEVA [Concomitant]
     Active Substance: DENOSUMAB
     Indication: PROPHYLAXIS
     Dosage: 120.00MGEVERY 4 WEEKS
     Route: 058
     Dates: start: 20160908

REACTIONS (1)
  - Intestinal ischaemia [Not Recovered/Not Resolved]

NARRATIVE: CASE EVENT DATE: 20161223
